FAERS Safety Report 6887661-2 (Version None)
Quarter: 2010Q3

REPORT INFORMATION
  Report Type: 
  Country: None (occurrence: None)
  Receive Date: 20100728
  Receipt Date: 20100723
  Transmission Date: 20110219
  Serious: Yes (Other)
  Sender: FDA-Public Use
  Company Number: 2010TJ0136

PATIENT
  Age: 22 Year
  Sex: Female

DRUGS (1)
  1. TWINJECT 0.3 [Suspect]
     Indication: HYPERSENSITIVITY
     Dosage: 0.3 MG, ONCE
     Dates: start: 20100722, end: 20100722

REACTIONS (2)
  - DEVICE MALFUNCTION [None]
  - PRODUCT QUALITY ISSUE [None]
